FAERS Safety Report 20480856 (Version 1)
Quarter: 2022Q1

REPORT INFORMATION
  Report Type: Spontaneous
  Country: US (occurrence: None)
  Receive Date: 20220216
  Receipt Date: 20220216
  Transmission Date: 20220423
  Serious: Yes (unspecified)
  Sender: FDA-Public Use
  Company Number: None

PATIENT
  Age: 70 Year
  Sex: Female
  Weight: 62.4 kg

DRUGS (2)
  1. RITUXAN [Suspect]
     Active Substance: RITUXIMAB
     Indication: Diffuse large B-cell lymphoma
     Dosage: OTHER FREQUENCY : ONE TIME INFUSION;?
     Route: 041
     Dates: start: 20220210, end: 20220210
  2. Hydrocortisone 100 mg IVP [Concomitant]
     Dates: start: 20220210, end: 20220210

REACTIONS (5)
  - Nausea [None]
  - Dyspnoea [None]
  - Oxygen saturation decreased [None]
  - Hyperventilation [None]
  - Blood pressure systolic increased [None]

NARRATIVE: CASE EVENT DATE: 20220210
